FAERS Safety Report 5011871-2 (Version None)
Quarter: 2006Q2

REPORT INFORMATION
  Report Type: 
  Country: None (occurrence: None)
  Receive Date: 20060526
  Receipt Date: 20060519
  Transmission Date: 20061013
  Serious: Yes (Death)
  Sender: FDA-Public Use
  Company Number: FR-SANOFI-SYNTHELABO-A02200601337

PATIENT
  Age: 54 Year
  Sex: Female

DRUGS (5)
  1. POLARAMINE [Concomitant]
     Indication: PREMEDICATION
     Route: 065
     Dates: start: 20040101, end: 20040101
  2. ZOPHREN [Concomitant]
     Indication: PREMEDICATION
     Route: 065
     Dates: start: 20040101, end: 20040101
  3. RANIPLEX [Concomitant]
     Indication: PREMEDICATION
     Route: 065
     Dates: start: 20040101, end: 20040101
  4. CORTICOIDS [Concomitant]
     Indication: PREMEDICATION
     Route: 065
     Dates: start: 20040101, end: 20040101
  5. ELOXATIN [Suspect]
     Indication: COLON CANCER
     Route: 042
     Dates: start: 20040101, end: 20040101

REACTIONS (3)
  - ABDOMINAL PAIN [None]
  - MALAISE [None]
  - SHOCK [None]
